FAERS Safety Report 4829618-9 (Version None)
Quarter: 2005Q4

REPORT INFORMATION
  Report Type: 
  Country: None (occurrence: None)
  Receive Date: 20051027
  Receipt Date: 20050906
  Transmission Date: 20060501
  Serious: Yes (Other)
  Sender: FDA-Public Use
  Company Number: 200516282US

PATIENT
  Age: 59 Year
  Sex: Female
  Weight: 109 kg

DRUGS (6)
  1. ARAVA [Suspect]
     Dosage: 20 MG QD PO
     Route: 048
     Dates: start: 20050202, end: 20050327
  2. PARACETAMOL [Concomitant]
  3. HYDROCODONE BITARTRATE (NORCO) [Concomitant]
  4. MORPHINE [Concomitant]
  5. CARISOPRODOL (SOMA) [Concomitant]
  6. NORVASC [Concomitant]

REACTIONS (7)
  - DYSPNOEA [None]
  - HYPERSENSITIVITY [None]
  - PRURITUS [None]
  - RASH GENERALISED [None]
  - STASIS DERMATITIS [None]
  - URTICARIA [None]
  - WHEEZING [None]
